FAERS Safety Report 21636540 (Version 2)
Quarter: 2022Q4

REPORT INFORMATION
  Report Type: Spontaneous
  Country: DE (occurrence: DE)
  Receive Date: 20221124
  Receipt Date: 20221202
  Transmission Date: 20230113
  Serious: Yes (Other)
  Sender: FDA-Public Use
  Company Number: DE-ALKEM LABORATORIES LIMITED-DE-ALKEM-2022-12809

PATIENT
  Sex: Female

DRUGS (4)
  1. AMISULPRIDE [Suspect]
     Active Substance: AMISULPRIDE
     Indication: Product used for unknown indication
     Dosage: UNK
     Route: 065
  2. PREGABALIN [Suspect]
     Active Substance: PREGABALIN
     Indication: Restlessness
     Dosage: UNK, (CAPSULES)
     Route: 048
     Dates: start: 20221019, end: 20221029
  3. PREGABALIN [Suspect]
     Active Substance: PREGABALIN
     Indication: Anxiety
  4. SEROQUEL [Concomitant]
     Active Substance: QUETIAPINE FUMARATE
     Indication: Product used for unknown indication
     Dosage: 50 MILLIGRAM, QD (EVERY 1 DAY)
     Route: 065

REACTIONS (21)
  - Diarrhoea haemorrhagic [Unknown]
  - Anxiety [Unknown]
  - Abnormal dreams [Unknown]
  - Balance disorder [Unknown]
  - Blood prolactin increased [Unknown]
  - Burning sensation [Unknown]
  - Dizziness [Unknown]
  - Drug intolerance [Unknown]
  - Dyspepsia [Unknown]
  - Muscle strain [Unknown]
  - Oral discomfort [Unknown]
  - Paraesthesia oral [Not Recovered/Not Resolved]
  - Paraesthesia [Not Recovered/Not Resolved]
  - Restlessness [Unknown]
  - Restless legs syndrome [Not Recovered/Not Resolved]
  - Sleep deficit [Unknown]
  - Therapeutic product effect incomplete [Unknown]
  - Pain [Unknown]
  - Withdrawal syndrome [Unknown]
  - Bruxism [Unknown]
  - Drug ineffective [Unknown]

NARRATIVE: CASE EVENT DATE: 20221001
